FAERS Safety Report 10211060 (Version 1)
Quarter: 2014Q2

REPORT INFORMATION
  Report Type: Spontaneous
  Country: US (occurrence: US)
  Receive Date: 20140602
  Receipt Date: 20140602
  Transmission Date: 20141212
  Serious: Yes (Other)
  Sender: FDA-Public Use
  Company Number: US-TEVA-485236USA

PATIENT
  Sex: Female

DRUGS (3)
  1. COPAXONE [Suspect]
     Dates: end: 20140401
  2. TECFIDERA [Suspect]
     Dosage: USED FOR FIVE WEEKS
  3. AMPYRA [Suspect]
     Dosage: STOPPED AFTER ONE MONTH

REACTIONS (3)
  - Multiple sclerosis [Unknown]
  - Drug ineffective [Unknown]
  - Dizziness [Unknown]
